FAERS Safety Report 12749613 (Version 2)
Quarter: 2016Q3

REPORT INFORMATION
  Report Type: Spontaneous
  Country: FR (occurrence: FR)
  Receive Date: 20160915
  Receipt Date: 20160920
  Transmission Date: 20161109
  Serious: Yes (Hospitalization, Other)
  Sender: FDA-Public Use
  Company Number: FR-ASTRAZENECA-2016SE95881

PATIENT
  Age: 30 Year
  Sex: Male

DRUGS (9)
  1. WINSTROL [Concomitant]
     Active Substance: STANOZOLOL
     Route: 048
  2. ARIMIDEX [Suspect]
     Active Substance: ANASTROZOLE
     Route: 048
  3. ALDACTONE [Suspect]
     Active Substance: SPIRONOLACTONE
     Route: 048
  4. PEPTIDES [Concomitant]
     Indication: NUTRITIONAL SUPPLEMENTATION
     Dates: end: 201605
  5. SERETIDE [Concomitant]
     Active Substance: FLUTICASONE PROPIONATE\SALMETEROL XINAFOATE
     Indication: ASTHMA
  6. VENTOLINE [Concomitant]
     Active Substance: ALBUTEROL
     Indication: ASTHMA
  7. T3/T4 THYROID HORMONES [Concomitant]
     Active Substance: LEVOTHYROXINE\LIOTHYRONINE
     Indication: NUTRITIONAL SUPPLEMENTATION
  8. CLENBUTEROL [Suspect]
     Active Substance: CLENBUTEROL
     Route: 065
  9. TESTOSTERONE PROPIONATE. [Suspect]
     Active Substance: TESTOSTERONE PROPIONATE
     Indication: NUTRITIONAL SUPPLEMENTATION
     Route: 030

REACTIONS (5)
  - Acute kidney injury [Unknown]
  - Off label use [Recovered/Resolved]
  - Electrocardiogram repolarisation abnormality [Unknown]
  - Product use issue [Recovered/Resolved]
  - Pancreatitis acute [Recovered/Resolved]

NARRATIVE: CASE EVENT DATE: 201605
